FAERS Safety Report 20524402 (Version 1)
Quarter: 2022Q1

REPORT INFORMATION
  Report Type: Spontaneous
  Country: US (occurrence: US)
  Receive Date: 20220228
  Receipt Date: 20220228
  Transmission Date: 20220423
  Serious: No
  Sender: FDA-Public Use
  Company Number: US-SANOFI-00986528

PATIENT
  Sex: Female

DRUGS (1)
  1. LANTUS [Suspect]
     Active Substance: INSULIN GLARGINE
     Indication: Product used for unknown indication
     Dosage: 20 IU, BID, DRUG STRUCTURE DOSAGE : TOTAL OF 40 UNITS DRUG INTERVAL DOSAGE : MORNING AND NIGHT

REACTIONS (1)
  - Product use issue [Unknown]
